FAERS Safety Report 21896370 (Version 1)
Quarter: 2023Q1

REPORT INFORMATION
  Report Type: Spontaneous
  Country: DE (occurrence: DE)
  Receive Date: 20230123
  Receipt Date: 20230123
  Transmission Date: 20230418
  Serious: No
  Sender: FDA-Public Use
  Company Number: DE-ALKEM LABORATORIES LIMITED-DE-ALKEM-2022-14171

PATIENT
  Age: 43 Year
  Sex: Female
  Weight: 49 kg

DRUGS (22)
  1. FINGOLIMOD [Suspect]
     Active Substance: FINGOLIMOD
     Indication: Relapsing-remitting multiple sclerosis
     Dosage: 0.5 MILLIGRAM
     Route: 048
     Dates: end: 20211119
  2. FINGOLIMOD [Suspect]
     Active Substance: FINGOLIMOD
     Dosage: 0.56 MILLIGRAM
     Route: 048
     Dates: start: 20200817, end: 20210916
  3. FINGOLIMOD [Suspect]
     Active Substance: FINGOLIMOD
     Dosage: 0.5 MILLIGRAM
     Route: 048
     Dates: start: 20200817, end: 20211119
  4. COMIRNATY [Concomitant]
     Active Substance: TOZINAMERAN
     Indication: COVID-19
     Dosage: 0.3 MILLILITER, 1 TOTAL
     Route: 030
     Dates: start: 20211130, end: 20211130
  5. COMIRNATY [Concomitant]
     Active Substance: TOZINAMERAN
     Indication: COVID-19 immunisation
  6. DIPHTHERIA TOXOID NOS [Concomitant]
     Active Substance: CORYNEBACTERIUM DIPHTHERIAE TOXOID ANTIGEN (FORMALDEHYDE INACTIVATED)
     Indication: Prophylaxis
     Dosage: UNK, 1 TOTAL
     Route: 030
     Dates: start: 20220208, end: 20220208
  7. IBUPROFEN [Concomitant]
     Active Substance: IBUPROFEN
     Indication: Dysmenorrhoea
     Dosage: 400 MILLIGRAM, EVERY 1 MONTH
     Route: 048
  8. KESIMPTA [Concomitant]
     Active Substance: OFATUMUMAB
     Indication: Multiple sclerosis
     Dosage: 20 MILLIGRAM, EVERY 1 MONTH
     Route: 058
     Dates: start: 20220331
  9. DESLORATADINE [Concomitant]
     Active Substance: DESLORATADINE
     Indication: Seasonal allergy
     Dosage: 5 MILLIGRAM, 1 AS NECESSARY
     Route: 048
  10. Measles, Mumps and Rubella Vaccine (Live) [Concomitant]
     Indication: Prophylaxis
     Dosage: UNK, 1 TOTAL
     Route: 030
     Dates: start: 20220208, end: 20220208
  11. MOMETASONE [Concomitant]
     Active Substance: MOMETASONE
     Indication: Seasonal allergy
     Dosage: 1 DOSAGE FORM, 1 AS NECESSARY
     Route: 045
  12. METHYLPREDNISOLONE [Concomitant]
     Active Substance: METHYLPREDNISOLONE
     Indication: Multiple sclerosis relapse
     Dosage: 16 MILLIGRAM, EVERY 8 CYCLE
     Route: 048
     Dates: end: 2022
  13. METHYLPREDNISOLONE [Concomitant]
     Active Substance: METHYLPREDNISOLONE
     Indication: Seasonal allergy
     Dosage: 1000 MILLIGRAM, (ORAL USE/INTRAVENOUS USE)
     Route: 065
     Dates: start: 20220124, end: 20220125
  14. METHYLPREDNISOLONE [Concomitant]
     Active Substance: METHYLPREDNISOLONE
     Dosage: 1000 MILLIGRAM, (ORAL USE/INTRAVENOUS USE)
     Route: 065
     Dates: start: 20220126, end: 20220126
  15. METHYLPREDNISOLONE [Concomitant]
     Active Substance: METHYLPREDNISOLONE
     Dosage: 1000 MILLIGRAM, (ORAL USE/INTRAVENOUS USE)
     Route: 065
     Dates: start: 20220127, end: 20220128
  16. PANTOPRAZOLE [Concomitant]
     Active Substance: PANTOPRAZOLE
     Indication: Prophylaxis
     Dosage: UNK
     Route: 048
     Dates: start: 20211223, end: 20211226
  17. PERTUSSIS VACCINE [Concomitant]
     Active Substance: PERTUSSIS VACCINE
     Indication: Prophylaxis
     Dosage: UNK, 1 TOTAL
     Route: 030
     Dates: start: 20220208, end: 20220208
  18. POLIOMYELITIS VACCINE [Concomitant]
     Active Substance: POLIOMYELITIS VACCINE
     Indication: Prophylaxis
     Dosage: UNK, 1 TOTAL
     Route: 030
     Dates: start: 20220208, end: 20220208
  19. SPIKEVAX [Concomitant]
     Active Substance: ELASOMERAN
     Indication: COVID-19
     Dosage: 0.3 MILLILITER, 1 TOTAL
     Route: 030
     Dates: start: 20210517, end: 20210517
  20. SPIKEVAX [Concomitant]
     Active Substance: ELASOMERAN
     Indication: COVID-19 immunisation
     Dosage: 0.3 MILLILITER, 1 TOTAL
     Route: 030
     Dates: start: 20210628, end: 20210628
  21. TETANUS VACCINES [Concomitant]
     Indication: Prophylaxis
     Dosage: UNK, 1 TOTAL
     Route: 030
     Dates: start: 20220208, end: 20220208
  22. VESIKUR [Concomitant]
     Active Substance: SOLIFENACIN SUCCINATE
     Indication: Bladder disorder
     Dosage: 5 MILLIGRAM, QD, EVERY 1 DAY
     Route: 048

REACTIONS (4)
  - CD19 lymphocytes decreased [Recovered/Resolved]
  - Natural killer cell count decreased [Recovered/Resolved]
  - T-lymphocyte count increased [Not Recovered/Not Resolved]
  - CD19 lymphocytes decreased [Not Recovered/Not Resolved]

NARRATIVE: CASE EVENT DATE: 20211119
